FAERS Safety Report 11370722 (Version 1)
Quarter: 2015Q3

REPORT INFORMATION
  Report Type: Spontaneous
  Country: FR (occurrence: FR)
  Receive Date: 20150812
  Receipt Date: 20150812
  Transmission Date: 20151125
  Serious: Yes (Disabling)
  Sender: FDA-Public Use
  Company Number: FR-PFIZER INC-2015265298

PATIENT
  Age: 51 Year
  Sex: Male

DRUGS (8)
  1. ADVAGRAF [Suspect]
     Active Substance: TACROLIMUS
     Dosage: 5 MG, DAILY
     Route: 048
     Dates: start: 201305
  2. SOLUPRED [Suspect]
     Active Substance: PREDNISOLONE
     Dosage: UNK
     Route: 048
     Dates: start: 201301, end: 201303
  3. SOLU-MEDROL [Suspect]
     Active Substance: METHYLPREDNISOLONE SODIUM SUCCINATE
     Dosage: 80 MG, UNK
     Route: 042
     Dates: start: 20130107
  4. SOLUPRED [Suspect]
     Active Substance: PREDNISOLONE
     Dosage: 15 MG, DAILY
     Route: 048
     Dates: start: 201303, end: 201305
  5. CERTICAN [Concomitant]
     Active Substance: EVEROLIMUS
     Dosage: UNK
     Route: 048
     Dates: start: 201301
  6. ADVAGRAF [Suspect]
     Active Substance: TACROLIMUS
     Indication: RENAL TRANSPLANT
     Dosage: UNK
     Route: 048
     Dates: start: 201303, end: 201305
  7. PROGRAF [Suspect]
     Active Substance: TACROLIMUS\TACROLIMUS ANHYDROUS
     Indication: RENAL TRANSPLANT
     Dosage: 5 MG, UNK
     Route: 048
     Dates: start: 20130103, end: 201303
  8. SOLUPRED [Suspect]
     Active Substance: PREDNISOLONE
     Dosage: 10 MG, DAILY
     Route: 048
     Dates: start: 201305, end: 201308

REACTIONS (1)
  - Complex regional pain syndrome [Recovering/Resolving]

NARRATIVE: CASE EVENT DATE: 201408
